FAERS Safety Report 20838162 (Version 1)
Quarter: 2022Q2

REPORT INFORMATION
  Report Type: Spontaneous
  Country: US (occurrence: US)
  Receive Date: 20220517
  Receipt Date: 20220517
  Transmission Date: 20220720
  Serious: No
  Sender: FDA-Public Use
  Company Number: US-ALLERGAN-2207235US

PATIENT
  Age: 37 Year
  Sex: Female

DRUGS (2)
  1. KYBELLA [Suspect]
     Active Substance: DEOXYCHOLIC ACID
     Indication: Lipolysis procedure
     Dosage: 2 VIALS
     Dates: start: 202106, end: 202106
  2. KYBELLA [Suspect]
     Active Substance: DEOXYCHOLIC ACID
     Dosage: 2 VIALS
     Dates: start: 202111, end: 202111

REACTIONS (4)
  - Depression [Unknown]
  - Injection site deformation [Not Recovered/Not Resolved]
  - Depressed mood [Unknown]
  - Facial asymmetry [Unknown]
